FAERS Safety Report 8376070-5 (Version None)
Quarter: 2012Q2

REPORT INFORMATION
  Report Type: 
  Country: None (occurrence: None)
  Receive Date: 20120522
  Receipt Date: 20120517
  Transmission Date: 20120825
  Serious: Yes (Other)
  Sender: FDA-Public Use
  Company Number: PHHY2012BR033797

PATIENT
  Sex: Male

DRUGS (4)
  1. TEGRETOL-XR [Suspect]
     Indication: CONVULSION
     Dosage: 400 MG
     Route: 048
  2. PHENOBARBITAL TAB [Suspect]
     Dosage: UNK
  3. CARBAMAZEPINE [Suspect]
     Dosage: 400 MG
  4. PHENYTOIN [Suspect]
     Dosage: 100 MG

REACTIONS (11)
  - TONGUE NEOPLASM [None]
  - MOUTH INJURY [None]
  - PLATELET COUNT DECREASED [None]
  - LOCAL SWELLING [None]
  - LUNG NEOPLASM [None]
  - ORAL NEOPLASM [None]
  - HAEMOGLOBIN DECREASED [None]
  - NECK MASS [None]
  - CONVULSION [None]
  - CEREBROVASCULAR ACCIDENT [None]
  - VOMITING [None]
